FAERS Safety Report 17625293 (Version 1)
Quarter: 2020Q2

REPORT INFORMATION
  Report Type: Report from Study
  Country: None (occurrence: US)
  Receive Date: 20200404
  Receipt Date: 20200404
  Transmission Date: 20200713
  Serious: Yes (Hospitalization)
  Sender: FDA-Public Use
  Company Number: US-ABBVIE-20K-163-3312110-00

PATIENT
  Age: 58 Year
  Sex: Female
  Weight: 72.64 kg

DRUGS (10)
  1. GABAPENTIN. [Concomitant]
     Active Substance: GABAPENTIN
     Indication: NEURALGIA
  2. HUMIRA [Suspect]
     Active Substance: ADALIMUMAB
     Route: 058
     Dates: start: 201311, end: 2015
  3. SULINDAC. [Concomitant]
     Active Substance: SULINDAC
     Indication: SWELLING
  4. HUMIRA [Suspect]
     Active Substance: ADALIMUMAB
     Route: 058
     Dates: start: 2016
  5. FOLIC ACID. [Concomitant]
     Active Substance: FOLIC ACID
     Indication: PRODUCT USED FOR UNKNOWN INDICATION
  6. METHOTREXATE. [Concomitant]
     Active Substance: METHOTREXATE
     Indication: RHEUMATOID ARTHRITIS
  7. CITRACAL [Concomitant]
     Active Substance: CALCIUM CITRATE
     Indication: VITAMIN SUPPLEMENTATION
  8. HUMIRA [Suspect]
     Active Substance: ADALIMUMAB
     Indication: RHEUMATOID ARTHRITIS
     Route: 058
     Dates: start: 2012, end: 201311
  9. OMEPRAZOLE. [Concomitant]
     Active Substance: OMEPRAZOLE
     Indication: GASTROOESOPHAGEAL REFLUX DISEASE
  10. TYLENOL [Concomitant]
     Active Substance: ACETAMINOPHEN
     Indication: PAIN

REACTIONS (22)
  - Pneumonia [Recovered/Resolved]
  - Pain [Not Recovered/Not Resolved]
  - Arthralgia [Not Recovered/Not Resolved]
  - Fine motor skill dysfunction [Recovering/Resolving]
  - Musculoskeletal stiffness [Recovering/Resolving]
  - Fall [Recovered/Resolved]
  - Back pain [Not Recovered/Not Resolved]
  - Hypoaesthesia [Recovering/Resolving]
  - Myelopathy [Recovered/Resolved]
  - Osteoarthritis [Recovering/Resolving]
  - Mobility decreased [Recovering/Resolving]
  - Fall [Not Recovered/Not Resolved]
  - Insomnia [Recovering/Resolving]
  - Grip strength decreased [Recovering/Resolving]
  - Asthenia [Not Recovered/Not Resolved]
  - Gait disturbance [Not Recovered/Not Resolved]
  - Dyspnoea [Recovered/Resolved]
  - Paraesthesia [Recovering/Resolving]
  - Intervertebral disc protrusion [Recovered/Resolved]
  - Nerve injury [Recovering/Resolving]
  - Gait disturbance [Recovering/Resolving]
  - Nerve injury [Not Recovered/Not Resolved]

NARRATIVE: CASE EVENT DATE: 2013
